FAERS Safety Report 9702988 (Version 2)
Quarter: 2013Q4

REPORT INFORMATION
  Report Type: Spontaneous
  Country: US (occurrence: US)
  Receive Date: 20131122
  Receipt Date: 20131219
  Transmission Date: 20140711
  Serious: No
  Sender: FDA-Public Use
  Company Number: US-009507513-1311USA006778

PATIENT
  Sex: Male

DRUGS (4)
  1. FOSAMAX [Suspect]
     Indication: OSTEOPOROSIS
     Dosage: UNK
     Route: 048
  2. RECLAST [Concomitant]
     Dosage: UNK, REPORTED AS: WAS ON POINT 4
  3. OMEPRAZOLE [Concomitant]
     Dosage: UNK
  4. BONIVA [Concomitant]
     Indication: OSTEOPOROSIS
     Dosage: UNK

REACTIONS (2)
  - Drug ineffective [Unknown]
  - Nausea [Unknown]
